APPROVED DRUG PRODUCT: THEOBID JR.
Active Ingredient: THEOPHYLLINE
Strength: 130MG
Dosage Form/Route: CAPSULE, EXTENDED RELEASE;ORAL
Application: A087854 | Product #001
Applicant: WHITBY PHARMACEUTICALS INC
Approved: Mar 20, 1985 | RLD: No | RS: No | Type: DISCN